FAERS Safety Report 17094461 (Version 2)
Quarter: 2019Q4

REPORT INFORMATION
  Report Type: Spontaneous
  Country: US (occurrence: US)
  Receive Date: 20191129
  Receipt Date: 20191205
  Transmission Date: 20200122
  Serious: Yes (Hospitalization)
  Sender: FDA-Public Use
  Company Number: US-FRESENIUS MEDICAL CARE RENAL THERAPIES GROUP-FMC-1911-001503

PATIENT
  Sex: Female
  Weight: 76.5 kg

DRUGS (17)
  1. DELFLEX WITH DEXTROSE 4.25% LOW MAGNESIUM LOW CALCIUM [Suspect]
     Active Substance: CALCIUM CHLORIDE\DEXTROSE\MAGNESIUM CHLORIDE\SODIUM CHLORIDE\SODIUM LACTATE
     Indication: END STAGE RENAL DISEASE
     Dosage: FILL VOLUME = 2000 ML, 5 EXCHANGES, NO LAST FILL, NO DAYTIME EXCHANGE.
     Route: 033
     Dates: start: 20190821
  2. VELPHORO [Concomitant]
     Active Substance: FERRIC OXYHYDROXIDE
  3. TAMOXIFEN [Concomitant]
     Active Substance: TAMOXIFEN
  4. KEPPRA [Concomitant]
     Active Substance: LEVETIRACETAM
  5. CALCITRIOL. [Concomitant]
     Active Substance: CALCITRIOL
  6. CLOPIDOGREL [Concomitant]
     Active Substance: CLOPIDOGREL BISULFATE
  7. NEPHRO-CAP [Concomitant]
  8. DELFLEX WITH DEXTROSE 1.5% LOW MAGNESIUM LOW CALCIUM [Suspect]
     Active Substance: CALCIUM CHLORIDE\DEXTROSE\MAGNESIUM CHLORIDE\SODIUM CHLORIDE\SODIUM LACTATE
     Indication: END STAGE RENAL DISEASE
     Dosage: FILL VOLUME = 2000 ML, 5 EXCHANGES, NO LAST FILL, NO DAYTIME EXCHANGE.
     Route: 033
     Dates: start: 20190821
  9. DELFLEX WITH DEXTROSE 2.5% LOW MAGNESIUM LOW CALCIUM [Suspect]
     Active Substance: CALCIUM CHLORIDE\DEXTROSE\MAGNESIUM CHLORIDE\SODIUM CHLORIDE\SODIUM LACTATE
     Indication: END STAGE RENAL DISEASE
     Dosage: FILL VOLUME = 2000 ML, 5 EXCHANGES, NO LAST FILL, NO DAYTIME EXCHANGE.
     Route: 033
     Dates: start: 20190821
  10. DILANTIN [Concomitant]
     Active Substance: PHENYTOIN
  11. SIMVASTATIN. [Concomitant]
     Active Substance: SIMVASTATIN
  12. LOSARTAN. [Concomitant]
     Active Substance: LOSARTAN
  13. SODIUM BICARBONATE. [Concomitant]
     Active Substance: SODIUM BICARBONATE
  14. SYMBICORT [Concomitant]
     Active Substance: BUDESONIDE\FORMOTEROL FUMARATE DIHYDRATE
  15. INSULIN [Concomitant]
     Active Substance: INSULIN NOS
  16. MIRCERA [Concomitant]
     Active Substance: METHOXY POLYETHYLENE GLYCOL-EPOETIN BETA
  17. VITAMIN B12 [Concomitant]
     Active Substance: CYANOCOBALAMIN

REACTIONS (1)
  - Hypotension [Recovering/Resolving]
